FAERS Safety Report 4734068-X (Version None)
Quarter: 2005Q3

REPORT INFORMATION
  Report Type: 
  Country: None (occurrence: None)
  Receive Date: 20050803
  Receipt Date: 20050803
  Transmission Date: 20060218
  Serious: No
  Sender: FDA-Public Use
  Company Number: None

PATIENT
  Age: 36 Year
  Sex: Male
  Weight: 61.2356 kg

DRUGS (1)
  1. PIROXICAM [Suspect]
     Indication: PAIN
     Dosage: TWICE DAILY ORALLY
     Route: 048
     Dates: start: 20050701, end: 20050707

REACTIONS (2)
  - CHEST PAIN [None]
  - HEADACHE [None]
